FAERS Safety Report 11516366 (Version 1)
Quarter: 2015Q3

REPORT INFORMATION
  Report Type: Spontaneous
  Country: US (occurrence: US)
  Receive Date: 20150917
  Receipt Date: 20150917
  Transmission Date: 20151125
  Serious: No
  Sender: FDA-Public Use
  Company Number: US-BRISTOL-MYERS SQUIBB COMPANY-BMS-2015-060480

PATIENT

DRUGS (1)
  1. ABILIFY [Suspect]
     Active Substance: ARIPIPRAZOLE
     Indication: PRODUCT USED FOR UNKNOWN INDICATION
     Route: 065

REACTIONS (9)
  - Restlessness [Unknown]
  - Depression [Recovering/Resolving]
  - Treatment noncompliance [Unknown]
  - Drug ineffective [Unknown]
  - Insomnia [Unknown]
  - Frustration [Unknown]
  - Tremor [Unknown]
  - Headache [Unknown]
  - Balance disorder [Unknown]
